FAERS Safety Report 18793955 (Version 1)
Quarter: 2021Q1

REPORT INFORMATION
  Report Type: Report from Study
  Country: US (occurrence: US)
  Receive Date: 20210127
  Receipt Date: 20210127
  Transmission Date: 20210419
  Serious: Yes (Hospitalization)
  Sender: FDA-Public Use
  Company Number: US-EXELIXIS-XL18421036875

PATIENT
  Age: 46 Year
  Sex: Male
  Weight: 68 kg

DRUGS (2)
  1. XL184 [Suspect]
     Active Substance: CABOZANTINIB
     Indication: NASOPHARYNGEAL CANCER
     Dosage: 40 MG, QD, Q3 WEEKS
     Route: 048
     Dates: start: 20201222, end: 20210112
  2. PEMBROLIZUMAB. [Suspect]
     Active Substance: PEMBROLIZUMAB
     Indication: NASOPHARYNGEAL CANCER
     Dosage: 200 MG, Q3WEEKS
     Route: 042
     Dates: start: 20201222

REACTIONS (2)
  - Sepsis [Unknown]
  - Cellulitis staphylococcal [Unknown]

NARRATIVE: CASE EVENT DATE: 20210109
